FAERS Safety Report 10730151 (Version 4)
Quarter: 2015Q2

REPORT INFORMATION
  Report Type: Spontaneous
  Country: CA (occurrence: CA)
  Receive Date: 20150122
  Receipt Date: 20150428
  Transmission Date: 20150821
  Serious: Yes (Hospitalization, Other)
  Sender: FDA-Public Use
  Company Number: CA-ASTELLAS-2015US001606

PATIENT
  Age: 52 Year
  Sex: Female

DRUGS (9)
  1. ADVAGRAF [Suspect]
     Active Substance: TACROLIMUS
     Indication: RENAL TRANSPLANT
     Route: 048
     Dates: start: 20141224
  2. ADVAGRAF [Suspect]
     Active Substance: TACROLIMUS
     Route: 048
  3. ADVAGRAF [Suspect]
     Active Substance: TACROLIMUS
     Route: 048
     Dates: start: 201503
  4. ADVAGRAF [Suspect]
     Active Substance: TACROLIMUS
  5. ADVAGRAF [Suspect]
     Active Substance: TACROLIMUS
     Route: 048
  6. MYFORTIC [Concomitant]
     Active Substance: MYCOPHENOLATE SODIUM
     Indication: PROPHYLAXIS AGAINST TRANSPLANT REJECTION
     Dosage: UNK UNK, UNKNOWN FREQ.
     Route: 048
  7. ADVAGRAF [Suspect]
     Active Substance: TACROLIMUS
     Route: 048
  8. ADVAGRAF [Suspect]
     Active Substance: TACROLIMUS
     Route: 048
     Dates: end: 201503
  9. HEPARIN [Concomitant]
     Active Substance: HEPARIN SODIUM
     Indication: PRODUCT USED FOR UNKNOWN INDICATION
     Dosage: UNK UNK, UNKNOWN FREQ.
     Route: 065

REACTIONS (4)
  - Haematoma [Recovering/Resolving]
  - Blood creatine abnormal [Recovered/Resolved]
  - Immunosuppressant drug level increased [Unknown]
  - Pyrexia [Recovered/Resolved]

NARRATIVE: CASE EVENT DATE: 201501
